FAERS Safety Report 14310901 (Version 10)
Quarter: 2018Q2

REPORT INFORMATION
  Report Type: Spontaneous
  Country: GR (occurrence: GR)
  Receive Date: 20171221
  Receipt Date: 20180605
  Transmission Date: 20180711
  Serious: Yes (Other)
  Sender: FDA-Public Use
  Company Number: PHHY2017GR190078

PATIENT
  Age: 66 Year
  Sex: Female

DRUGS (15)
  1. RUXOLITINIB [Suspect]
     Active Substance: RUXOLITINIB
     Indication: PRODUCT USED FOR UNKNOWN INDICATION
  2. CYCLOPHOSPHAMIDE. [Suspect]
     Active Substance: CYCLOPHOSPHAMIDE
     Indication: PRODUCT USED FOR UNKNOWN INDICATION
  3. ELTROMBOPAG [Suspect]
     Active Substance: ELTROMBOPAG
     Indication: PRODUCT USED FOR UNKNOWN INDICATION
  4. RITUXIMAB. [Suspect]
     Active Substance: RITUXIMAB
     Indication: CHRONIC LYMPHOCYTIC LEUKAEMIA
     Dosage: UNK UNK, QMO (3 CYCLES)
     Route: 065
  5. ELTROMBOPAG [Suspect]
     Active Substance: ELTROMBOPAG
     Dosage: UNK
     Route: 065
  6. ELTROMBOPAG [Suspect]
     Active Substance: ELTROMBOPAG
     Indication: CHRONIC LYMPHOCYTIC LEUKAEMIA
  7. PENTOSTATIN. [Suspect]
     Active Substance: PENTOSTATIN
     Dosage: UNK
     Route: 065
  8. PENTOSTATIN. [Suspect]
     Active Substance: PENTOSTATIN
     Indication: PRODUCT USED FOR UNKNOWN INDICATION
  9. RUXOLITINIB [Suspect]
     Active Substance: RUXOLITINIB
     Indication: CHRONIC LYMPHOCYTIC LEUKAEMIA
     Dosage: UNK
     Route: 065
  10. ELTROMBOPAG [Suspect]
     Active Substance: ELTROMBOPAG
     Indication: THROMBOCYTOPENIA
  11. CYCLOPHOSPHAMIDE. [Suspect]
     Active Substance: CYCLOPHOSPHAMIDE
     Indication: CHRONIC LYMPHOCYTIC LEUKAEMIA
  12. FLUDARABINE [Suspect]
     Active Substance: FLUDARABINE PHOSPHATE
     Indication: CHRONIC LYMPHOCYTIC LEUKAEMIA
     Dosage: UNK, QMO (3 CYCLES)
     Route: 065
  13. CYCLOPHOSPHAMIDE. [Suspect]
     Active Substance: CYCLOPHOSPHAMIDE
     Dosage: UNK, QMO (3 CYCLES)
     Route: 065
  14. PENTOSTATIN. [Suspect]
     Active Substance: PENTOSTATIN
     Indication: CHRONIC LYMPHOCYTIC LEUKAEMIA
  15. IMMUNOGLOBULIN (IMMUNOGLOBULIN HUMAN NORMAL) [Suspect]
     Active Substance: HUMAN IMMUNOGLOBULIN G
     Indication: CHRONIC LYMPHOCYTIC LEUKAEMIA
     Dosage: UNK
     Route: 042

REACTIONS (10)
  - Product use in unapproved indication [Unknown]
  - Polymerase chain reaction positive [None]
  - Neutropenia [Unknown]
  - Pancytopenia [Unknown]
  - Acute myeloid leukaemia [Unknown]
  - Chronic lymphocytic leukaemia [Unknown]
  - Lumbar vertebral fracture [Unknown]
  - Thrombocytopenia [Unknown]
  - Anaemia [Unknown]
  - Therapy non-responder [Unknown]
